FAERS Safety Report 8074038-X (Version None)
Quarter: 2012Q1

REPORT INFORMATION
  Report Type: 
  Country: None (occurrence: None)
  Receive Date: 20120126
  Receipt Date: 20120118
  Transmission Date: 20120608
  Serious: Yes (Hospitalization)
  Sender: FDA-Public Use
  Company Number: US-ELI_LILLY_AND_COMPANY-US201201006510

PATIENT
  Sex: Female

DRUGS (6)
  1. HUMALOG MIX 75/25 [Suspect]
     Dosage: 42 U, EACH MORNING
  2. HUMALOG MIX 75/25 [Suspect]
     Dosage: 39 U, EACH EVENING
  3. HUMALOG MIX 75/25 [Suspect]
     Dosage: 30 U, EACH EVENING
     Dates: start: 20120110
  4. HUMALOG MIX 75/25 [Suspect]
     Indication: TYPE 2 DIABETES MELLITUS
     Dosage: 30 U, EACH MORNING
     Dates: start: 20120110
  5. HUMALOG MIX 75/25 [Suspect]
     Dosage: 37 U, EACH EVENING
  6. HUMALOG MIX 75/25 [Suspect]
     Dosage: 44 U, EACH MORNING

REACTIONS (6)
  - BLOOD GLUCOSE INCREASED [None]
  - PYREXIA [None]
  - BLOOD PRESSURE INCREASED [None]
  - URINARY TRACT INFECTION [None]
  - VOMITING [None]
  - MALAISE [None]
